FAERS Safety Report 5373573-2 (Version None)
Quarter: 2007Q2

REPORT INFORMATION
  Report Type: 
  Country: None (occurrence: None)
  Receive Date: 20070525
  Receipt Date: 20051216
  Transmission Date: 20071010
  Serious: Yes (Life-Threatening, Other)
  Sender: FDA-Public Use
  Company Number: 249410

PATIENT
  Age: 40 Year
  Sex: Female

DRUGS (7)
  1. NOVOSEVEN [Suspect]
     Indication: COAGULOPATHY
     Dosage: INTRAVENOUS
     Route: 042
  2. PROTHROMBINKOMPLEX-KONZENTRAT (FACTOR II, PROTHROMBIN) [Concomitant]
  3. FACTOR IX COMPLEX [Concomitant]
  4. FACTOR VII (PROCONVERTIN) [Concomitant]
  5. FACTOR X (STUART PROWER FACTOR)) [Concomitant]
  6. FACTOR IX COMPLEX HUMAN (FACTOR IX COMPLEX-HUMAN) [Concomitant]
  7. FACTOR X (STUART PROWER FACTOR) (FACTOR X (STUART PROWER FACTOR)) [Concomitant]

REACTIONS (1)
  - THROMBOTIC STROKE [None]
